FAERS Safety Report 8222212 (Version 2)
Quarter: 2012Q4

REPORT INFORMATION
  Report Type: 
  Country: IT (occurrence: IT)
  Receive Date: 20111102
  Receipt Date: 20120905
  Transmission Date: 20130627
  Serious: Yes (Hospitalization)
  Sender: FDA-Public Use
  Company Number: PHHO2011IT17922

PATIENT
  Age: 38 Year
  Sex: Female
  Weight: 70 kg

DRUGS (4)
  1. FTY [Suspect]
     Indication: RELAPSING-REMITTING MULTIPLE SCLEROSIS
     Dosage: 0.5 mg, QD
     Route: 048
     Dates: start: 20111012, end: 20111022
  2. CLARITHROMYCIN [Suspect]
     Indication: NASOPHARYNGITIS
     Dates: end: 20111022
  3. DEPAKIN [Concomitant]
     Indication: EPILEPSY
     Dosage: 500 mg, BID
     Route: 048
     Dates: start: 2001
  4. TEGRETOL [Concomitant]
     Indication: EPILEPSY
     Dosage: 400 mg, BID
     Route: 048
     Dates: start: 2001

REACTIONS (2)
  - Epilepsy [Recovered/Resolved]
  - Hepatitis cholestatic [Recovering/Resolving]
